FAERS Safety Report 11339811 (Version 3)
Quarter: 2015Q3

REPORT INFORMATION
  Report Type: Spontaneous
  Country: GB (occurrence: None)
  Receive Date: 20150803
  Receipt Date: 20150925
  Transmission Date: 20151125
  Serious: Yes (Death)
  Sender: FDA-Public Use
  Company Number: GB-ALSI-201500159

PATIENT
  Age: 18 Year
  Sex: Male

DRUGS (1)
  1. NITROUS OXIDE. [Suspect]
     Active Substance: NITROUS OXIDE
     Indication: SUBSTANCE USE
     Dosage: RESPIRATORY
     Route: 055
     Dates: start: 20150725, end: 20150725

REACTIONS (6)
  - Fall [None]
  - Sudden cardiac death [None]
  - Cardiac arrest [None]
  - Exposure via inhalation [None]
  - Cardiomegaly [None]
  - Drug abuse [None]

NARRATIVE: CASE EVENT DATE: 20150725
